FAERS Safety Report 18872999 (Version 12)
Quarter: 2024Q1

REPORT INFORMATION
  Report Type: Other
  Country: DE (occurrence: None)
  Receive Date: 20210210
  Receipt Date: 20240115
  Transmission Date: 20240409
  Serious: No
  Sender: FDA-Public Use
  Company Number: DE-ROCHE-2370574

PATIENT
  Age: 28 Year
  Sex: Female

DRUGS (4)
  1. OCREVUS [Suspect]
     Active Substance: OCRELIZUMAB
     Indication: Relapsing-remitting multiple sclerosis
     Dosage: 600 MG 182 DAYS. SUBSEQUENT DOSE ON 02/NOV/2023.
     Route: 042
     Dates: start: 20190618, end: 20190702
  2. OCREVUS [Suspect]
     Active Substance: OCRELIZUMAB
     Dosage: SUBSEQUENT DOSES OF OCRELIZUMAB: 20/AUG/2020
     Route: 042
     Dates: start: 20200130
  3. SALOFALK [Concomitant]
     Dosage: AS REQUIRED
  4. SALOFALK GRANU-STIX [Concomitant]

REACTIONS (11)
  - Body temperature increased [Recovered/Resolved]
  - Fatigue [Recovered/Resolved]
  - Infection [Recovered/Resolved]
  - Asthenia [Recovered/Resolved]
  - Illness [Recovered/Resolved]
  - Drug ineffective [Unknown]
  - Nasopharyngitis [Recovered/Resolved]
  - COVID-19 [Recovering/Resolving]
  - Peripheral swelling [Recovered/Resolved]
  - C-reactive protein [Recovered/Resolved]
  - Influenza like illness [Recovered/Resolved]

NARRATIVE: CASE EVENT DATE: 20190702
